FAERS Safety Report 16737183 (Version 2)
Quarter: 2019Q3

REPORT INFORMATION
  Report Type: Report from Study
  Country: FR (occurrence: FR)
  Receive Date: 20190823
  Receipt Date: 20190916
  Transmission Date: 20191005
  Serious: Yes (Hospitalization, Other)
  Sender: FDA-Public Use
  Company Number: FR-MYLANLABS-2019M1078541

PATIENT
  Age: 76 Year
  Sex: Female
  Weight: 67 kg

DRUGS (6)
  1. IBRANCE [Suspect]
     Active Substance: PALBOCICLIB
     Indication: BREAST CANCER
     Dosage: 125 MILLIGRAM, CYCLE (21 DAYS OUT OF 28)
     Route: 048
     Dates: start: 20180306
  2. IBRANCE [Suspect]
     Active Substance: PALBOCICLIB
     Dosage: UNK
     Route: 065
     Dates: start: 20190221
  3. LETROZOLE. [Suspect]
     Active Substance: LETROZOLE
     Indication: BREAST CANCER
     Dosage: 2.5 MILLIGRAM, QD (1 CAPSULE IN THE MORNING)
     Route: 048
     Dates: start: 20180306
  4. LETROZOLE. [Suspect]
     Active Substance: LETROZOLE
     Dosage: UNK
     Route: 065
     Dates: start: 20190221
  5. AUGMENTIN [Concomitant]
     Active Substance: AMOXICILLIN\CLAVULANATE POTASSIUM
     Indication: EYE INFECTION
     Dosage: UNK
     Dates: start: 20180807, end: 20180812
  6. TETRALYSAL                         /00001701/ [Concomitant]
     Active Substance: LYMECYCLINE
     Indication: ROSACEA
     Dosage: 300 MILLIGRAM
     Dates: start: 20180515, end: 20180814

REACTIONS (18)
  - General physical health deterioration [Unknown]
  - Diarrhoea [Unknown]
  - Nausea [Unknown]
  - Pleural effusion [Unknown]
  - Interstitial lung disease [Unknown]
  - Rhonchi [Unknown]
  - Pneumonia [Unknown]
  - Vulvovaginal mycotic infection [Unknown]
  - Decreased appetite [Unknown]
  - Asthenia [Unknown]
  - Bronchitis [Recovered/Resolved]
  - Pain [Unknown]
  - Pyrexia [Unknown]
  - Dyspnoea [Unknown]
  - Cough [Unknown]
  - Candida infection [Unknown]
  - Influenza [Unknown]
  - Breast cancer recurrent [Unknown]

NARRATIVE: CASE EVENT DATE: 201902
